FAERS Safety Report 24056397 (Version 1)
Quarter: 2024Q3

REPORT INFORMATION
  Report Type: Spontaneous
  Country: US (occurrence: US)
  Receive Date: 20240705
  Receipt Date: 20240705
  Transmission Date: 20241016
  Serious: No
  Sender: ABBVIE
  Company Number: US-ABBVIE-5826960

PATIENT
  Age: 18 Year
  Sex: Male

DRUGS (1)
  1. RINVOQ [Suspect]
     Active Substance: UPADACITINIB
     Indication: Juvenile idiopathic arthritis
     Dosage: FORM STRENGTH: 15 MILLIGRAM?START DATE TEXT: UNKNOWN?STOP DATE TEXT: UNKNOWN
     Route: 048

REACTIONS (1)
  - Blood creatinine abnormal [Recovering/Resolving]
